FAERS Safety Report 8502560-8 (Version None)
Quarter: 2012Q3

REPORT INFORMATION
  Report Type: 
  Country: None (occurrence: None)
  Receive Date: 20120711
  Receipt Date: 20120703
  Transmission Date: 20120928
  Serious: Yes (Hospitalization)
  Sender: FDA-Public Use
  Company Number: US-US-EMD SERONO, INC.-7145738

PATIENT
  Sex: Female

DRUGS (1)
  1. REBIF [Suspect]
     Indication: PRODUCT USED FOR UNKNOWN INDICATION
     Dates: start: 20071003

REACTIONS (5)
  - HYPERTENSION [None]
  - VOMITING [None]
  - WEIGHT DECREASED [None]
  - URINARY TRACT INFECTION [None]
  - NAUSEA [None]
